FAERS Safety Report 7112872-0 (Version None)
Quarter: 2010Q4

REPORT INFORMATION
  Report Type: 
  Country: None (occurrence: None)
  Receive Date: 20101119
  Receipt Date: 20100208
  Transmission Date: 20110411
  Serious: No
  Sender: FDA-Public Use
  Company Number: US-BRISTOL-MYERS SQUIBB COMPANY-14976971

PATIENT
  Age: 71 Year
  Sex: Female

DRUGS (2)
  1. AVALIDE [Suspect]
     Indication: HYPERTENSION
     Dosage: 1 DF = 150MG/12.5MG START-15YRS
  2. CARVEDILOL [Suspect]

REACTIONS (2)
  - ARTHRALGIA [None]
  - MYALGIA [None]
